FAERS Safety Report 23311538 (Version 1)
Quarter: 2023Q4

REPORT INFORMATION
  Report Type: Spontaneous
  Country: US (occurrence: US)
  Receive Date: 20231219
  Receipt Date: 20231219
  Transmission Date: 20240109
  Serious: Yes (Other)
  Sender: FDA-Public Use
  Company Number: US-TEVA-VS-3135878

PATIENT
  Age: 31 Year

DRUGS (5)
  1. OLANZAPINE [Suspect]
     Active Substance: OLANZAPINE
     Indication: Psychiatric symptom
     Route: 065
  2. MIRTAZAPINE [Suspect]
     Active Substance: MIRTAZAPINE
     Indication: Psychiatric symptom
     Route: 065
  3. ATOMOXETINE [Suspect]
     Active Substance: ATOMOXETINE
     Indication: Psychiatric symptom
     Route: 065
  4. LITHIUM [Suspect]
     Active Substance: LITHIUM
     Indication: Psychiatric symptom
     Route: 065
  5. PALIPERIDONE [Suspect]
     Active Substance: PALIPERIDONE
     Indication: Psychiatric symptom
     Route: 065

REACTIONS (2)
  - Hyperprolactinaemia [Unknown]
  - Amenorrhoea [Unknown]
